FAERS Safety Report 14037917 (Version 4)
Quarter: 2018Q4

REPORT INFORMATION
  Report Type: Report from Study
  Country: IT (occurrence: IT)
  Receive Date: 20171004
  Receipt Date: 20181017
  Transmission Date: 20190204
  Serious: Yes (Other)
  Sender: FDA-Public Use
  Company Number: IT-ACCORD-059513

PATIENT
  Age: 39 Year
  Sex: Male
  Weight: 86 kg

DRUGS (4)
  1. FOLINIC ACID [Suspect]
     Active Substance: LEUCOVORIN
     Indication: COLON CANCER METASTATIC
     Dosage: PATIENT RECEIVED FOLFOX AT THE DOSE OF 2400 DOSAGE FORM Q2WK
     Route: 042
     Dates: start: 20170228
  2. OXALIPLATIN. [Suspect]
     Active Substance: OXALIPLATIN
     Indication: COLON CANCER METASTATIC
     Dosage: PATIENT RECEIVED FOLFOX AT THE DOSE OF 2400 DOSAGE FORM Q2WK
     Route: 042
     Dates: start: 20170228
  3. FLUOROURACIL. [Suspect]
     Active Substance: FLUOROURACIL
     Indication: COLON CANCER METASTATIC
     Dosage: PATIENT RECEIVED FOLFOX AT THE DOSE OF 2400 DOSAGE FORM Q2WK
     Route: 042
     Dates: start: 20170228
  4. VECTIBIX [Suspect]
     Active Substance: PANITUMUMAB
     Indication: COLON CANCER METASTATIC
     Route: 042
     Dates: start: 20170228

REACTIONS (8)
  - Erythema [Recovered/Resolved]
  - Nausea [Recovered/Resolved]
  - Skin toxicity [Recovered/Resolved]
  - Diarrhoea [Recovered/Resolved]
  - Vomiting [Recovered/Resolved]
  - Thrombocytopenia [Recovered/Resolved]
  - Neuropathy peripheral [Recovered/Resolved]
  - Asthenia [Recovered/Resolved]

NARRATIVE: CASE EVENT DATE: 20170314
